FAERS Safety Report 18453662 (Version 1)
Quarter: 2020Q4

REPORT INFORMATION
  Report Type: Spontaneous
  Country: US (occurrence: US)
  Receive Date: 20201102
  Receipt Date: 20201102
  Transmission Date: 20210114
  Serious: No
  Sender: FDA-Public Use
  Company Number: US-INCYTE CORPORATION-2020IN010588

PATIENT

DRUGS (1)
  1. JAKAFI [Suspect]
     Active Substance: RUXOLITINIB
     Indication: DISEASE SUSCEPTIBILITY
     Dosage: 5 MILLIGRAM, QD
     Route: 048

REACTIONS (2)
  - Off label use [Unknown]
  - Product dose omission issue [Unknown]
